FAERS Safety Report 16665305 (Version 1)
Quarter: 2019Q3

REPORT INFORMATION
  Report Type: Spontaneous
  Country: DE (occurrence: DE)
  Receive Date: 20190803
  Receipt Date: 20190803
  Transmission Date: 20191004
  Serious: Yes (Other)
  Sender: FDA-Public Use
  Company Number: DE-MICRO LABS LIMITED-ML2019-01840

PATIENT
  Age: 18 Year
  Sex: Female

DRUGS (5)
  1. PERAMPANEL [Interacting]
     Active Substance: PERAMPANEL
     Indication: LAFORA^S MYOCLONIC EPILEPSY
  2. STIRIPENTOL [Interacting]
     Active Substance: STIRIPENTOL
     Indication: LAFORA^S MYOCLONIC EPILEPSY
  3. CLOBAZAM. [Suspect]
     Active Substance: CLOBAZAM
     Indication: LAFORA^S MYOCLONIC EPILEPSY
  4. TOPIRAMATE. [Interacting]
     Active Substance: TOPIRAMATE
     Indication: LAFORA^S MYOCLONIC EPILEPSY
  5. VALPROATE [Interacting]
     Active Substance: VALPROIC ACID
     Indication: LAFORA^S MYOCLONIC EPILEPSY

REACTIONS (7)
  - Toxicity to various agents [Unknown]
  - Drug interaction [Unknown]
  - Hypoproteinaemia [Unknown]
  - Epilepsy [Unknown]
  - General physical health deterioration [Unknown]
  - Proteinuria [Unknown]
  - Oedema peripheral [Unknown]
